FAERS Safety Report 9393276 (Version 1)
Quarter: 2013Q3

REPORT INFORMATION
  Report Type: Spontaneous
  Country: FR (occurrence: FR)
  Receive Date: 20130710
  Receipt Date: 20130710
  Transmission Date: 20140515
  Serious: Yes (Hospitalization)
  Sender: FDA-Public Use
  Company Number: FR-GE HEALTHCARE MEDICAL DIAGNOSTICS-VISP-NO-1307S-0717

PATIENT
  Age: 69 Year
  Sex: Female

DRUGS (17)
  1. VISIPAQUE [Suspect]
     Indication: RENAL CANCER
     Dosage: DOSE NOT REPORTED
     Route: 042
     Dates: start: 20130107, end: 20130107
  2. VISIPAQUE [Suspect]
     Indication: DIAGNOSTIC PROCEDURE
  3. OSLIF BREEZEHALER [Concomitant]
  4. LYRICA [Concomitant]
  5. DOLIPRANE [Concomitant]
  6. TOPALGIC [Concomitant]
  7. INEXIUM [Concomitant]
  8. IMOVANE [Concomitant]
  9. ATARAX [Concomitant]
  10. LASILIX [Concomitant]
  11. KARDEGIC [Concomitant]
  12. CORTANCYL [Concomitant]
  13. IKOREL [Concomitant]
  14. ZOLOFT [Concomitant]
  15. AERIUS [Concomitant]
  16. CALCIT VITAMIN D3 [Concomitant]
  17. L5 SPECIAFOLDINE [Concomitant]

REACTIONS (5)
  - Rash maculo-papular [Recovered/Resolved]
  - Eyelid oedema [Recovered/Resolved]
  - Eosinophilia [Recovered/Resolved]
  - Pyrexia [Recovered/Resolved]
  - Epstein-Barr virus infection [Recovered/Resolved]
